FAERS Safety Report 7475733-3 (Version None)
Quarter: 2011Q2

REPORT INFORMATION
  Report Type: 
  Country: None (occurrence: None)
  Receive Date: 20110512
  Receipt Date: 20110426
  Transmission Date: 20111010
  Serious: Yes (Hospitalization)
  Sender: FDA-Public Use
  Company Number: FR-SANOFI-AVENTIS-200818180GDDC

PATIENT
  Age: 78 Year
  Sex: Male
  Weight: 84.5 kg

DRUGS (15)
  1. PREDNISONE [Suspect]
     Route: 048
     Dates: start: 20080519, end: 20080707
  2. ZOLADEX [Concomitant]
     Indication: HORMONE REPLACEMENT THERAPY
     Dates: start: 20051101
  3. PLAVIX [Concomitant]
     Dates: start: 20070801, end: 20080612
  4. TARDYFERON /GFR/ [Concomitant]
     Dates: start: 20080616
  5. CORDARONE [Concomitant]
     Dosage: DOSE AS USED: UNK
     Dates: start: 20070801
  6. DOCETAXEL [Suspect]
     Dosage: DOSE UNIT: 75 MG/M**2
     Route: 042
     Dates: start: 20080519, end: 20080519
  7. DOCETAXEL [Suspect]
     Dosage: DOSE UNIT: 75 MG/M**2
     Route: 042
     Dates: start: 20080707, end: 20080707
  8. LASIX [Concomitant]
     Dosage: DOSE AS USED: UNK
  9. ACETYLSALICYLIC ACID/PRAVASTATIN SODIUM [Concomitant]
  10. TRANDOLAPRIL [Concomitant]
  11. BLINDED THERAPY [Suspect]
     Dosage: DOSE UNIT: 6 MG/KG
     Route: 042
     Dates: start: 20080519, end: 20080519
  12. BLINDED THERAPY [Suspect]
     Dosage: DOSE UNIT: 6 MG/KG
     Route: 042
     Dates: start: 20080707, end: 20080707
  13. DOXAZOSIN MESYLATE [Concomitant]
  14. IMOVANE [Concomitant]
     Dosage: DOSE AS USED: UNK
  15. XALATAN [Concomitant]

REACTIONS (1)
  - ANAL FISTULA [None]
